FAERS Safety Report 5602067-1 (Version None)
Quarter: 2008Q1

REPORT INFORMATION
  Report Type: 
  Country: None (occurrence: None)
  Receive Date: 20080122
  Receipt Date: 20080122
  Transmission Date: 20080703
  Serious: Yes (Hospitalization)
  Sender: FDA-Public Use
  Company Number: None

PATIENT
  Age: 76 Year
  Sex: Female
  Weight: 65.7716 kg

DRUGS (1)
  1. HEPARIN LOCK-FLUSH [Suspect]
     Indication: STAPHYLOCOCCAL INFECTION
     Dosage: DAILY  IV BOLUS
     Route: 040
     Dates: end: 20071123

REACTIONS (3)
  - CATHETER RELATED INFECTION [None]
  - SERRATIA INFECTION [None]
  - STAPHYLOCOCCAL INFECTION [None]
